FAERS Safety Report 20591756 (Version 1)
Quarter: 2022Q1

REPORT INFORMATION
  Report Type: Spontaneous
  Country: CN (occurrence: CN)
  Receive Date: 20220314
  Receipt Date: 20220314
  Transmission Date: 20220423
  Serious: Yes (Other)
  Sender: FDA-Public Use
  Company Number: CN-PFIZER INC-202200364924

PATIENT
  Age: 40 Year
  Sex: Female

DRUGS (1)
  1. CYTARABINE [Suspect]
     Active Substance: CYTARABINE
     Indication: Therapeutic procedure
     Dosage: 3 G, 2X/DAY
     Route: 041
     Dates: start: 20220225, end: 20220227

REACTIONS (2)
  - Drug hypersensitivity [Recovered/Resolved]
  - Rash erythematous [Recovered/Resolved]

NARRATIVE: CASE EVENT DATE: 20220302
